FAERS Safety Report 14868000 (Version 2)
Quarter: 2018Q3

REPORT INFORMATION
  Report Type: Report from Study
  Country: US (occurrence: US)
  Receive Date: 20180509
  Receipt Date: 20180710
  Transmission Date: 20181010
  Serious: Yes (Other)
  Sender: FDA-Public Use
  Company Number: US-CIPLA (EU) LIMITED-2018US17177

PATIENT

DRUGS (4)
  1. SOFOSBUVIR W/VELPATASVIR [Suspect]
     Active Substance: SOFOSBUVIR\VELPATASVIR
     Dosage: UNK
     Route: 065
  2. ATAZANAVIR. [Suspect]
     Active Substance: ATAZANAVIR SULFATE
     Dosage: UNK
     Route: 065
  3. EMTRICITABINE/TENOFOVIR [Suspect]
     Active Substance: EMTRICITABINE\TENOFOVIR
     Dosage: UNK
     Route: 065
  4. RITONAVIR. [Suspect]
     Active Substance: RITONAVIR
     Dosage: UNK
     Route: 065

REACTIONS (1)
  - Blood urine present [Unknown]
